FAERS Safety Report 25423080 (Version 1)
Quarter: 2025Q2

REPORT INFORMATION
  Report Type: Spontaneous
  Country: US (occurrence: US)
  Receive Date: 20250611
  Receipt Date: 20250611
  Transmission Date: 20250716
  Serious: No
  Sender: PFIZER
  Company Number: US-PFIZER INC-202500119038

PATIENT
  Age: 33 Year
  Sex: Female

DRUGS (11)
  1. IBRANCE [Suspect]
     Active Substance: PALBOCICLIB
     Route: 048
     Dates: start: 20250423
  2. CALCIUM [Concomitant]
     Active Substance: CALCIUM
  3. CLEOCIN T [Concomitant]
     Active Substance: CLINDAMYCIN PHOSPHATE
  4. DEXAMETHASONE [Concomitant]
     Active Substance: DEXAMETHASONE
  5. GABAPENTIN [Concomitant]
     Active Substance: GABAPENTIN
  6. HYDROXYZINE [Concomitant]
     Active Substance: HYDROXYZINE HYDROCHLORIDE
  7. LAMOTRIGINE [Concomitant]
     Active Substance: LAMOTRIGINE
  8. LATUDA [Concomitant]
     Active Substance: LURASIDONE HYDROCHLORIDE
  9. LETROZOLE [Concomitant]
     Active Substance: LETROZOLE
  10. LIDOCAINE\PRILOCAINE [Concomitant]
     Active Substance: LIDOCAINE\PRILOCAINE
  11. LURASIDONE [Concomitant]
     Active Substance: LURASIDONE

REACTIONS (1)
  - Full blood count decreased [Unknown]
